FAERS Safety Report 12579159 (Version 2)
Quarter: 2016Q3

REPORT INFORMATION
  Report Type: Spontaneous
  Country: JP (occurrence: JP)
  Receive Date: 20160721
  Receipt Date: 20160729
  Transmission Date: 20161109
  Serious: No
  Sender: FDA-Public Use
  Company Number: JP-OTSUKA-2016_011254

PATIENT

DRUGS (2)
  1. BAYASPIRIN [Suspect]
     Active Substance: ASPIRIN
     Indication: PRODUCT USED FOR UNKNOWN INDICATION
     Dosage: UNK
     Route: 048
  2. PLETAAL OD TABLETS 50MG [Suspect]
     Active Substance: CILOSTAZOL
     Indication: THROMBOSIS PROPHYLAXIS
     Dosage: UNK
     Route: 048

REACTIONS (1)
  - No adverse event [Unknown]
